FAERS Safety Report 9424719 (Version 1)
Quarter: 2013Q3

REPORT INFORMATION
  Report Type: Spontaneous
  Country: FR (occurrence: FR)
  Receive Date: 20130729
  Receipt Date: 20130729
  Transmission Date: 20140515
  Serious: Yes (Death, Hospitalization)
  Sender: FDA-Public Use
  Company Number: FR-009507513-1307FRA010978

PATIENT
  Age: 90 Year
  Sex: Male

DRUGS (10)
  1. SINGULAIR [Suspect]
     Indication: ASTHMA
     Dosage: 10 MG, QD
     Route: 048
  2. FUROSEMIDE [Suspect]
     Indication: HYPERTENSION
     Dosage: 40 MG, BID
     Route: 048
  3. SPIRONOLACTONE [Suspect]
     Indication: HYPERTENSION
     Dosage: 75 MG, QD
     Route: 048
  4. TRINIPATCH [Suspect]
     Indication: ANGINA PECTORIS
     Dosage: 1 DF, QD
     Route: 003
  5. XARELTO [Suspect]
     Indication: ARRHYTHMIA
     Dosage: 1 DF, QD
     Route: 048
     Dates: start: 201301, end: 20130611
  6. HEMIGOXINE NATIVELLE [Suspect]
     Indication: PRODUCT USED FOR UNKNOWN INDICATION
     Dosage: 1 DF, QOD
     Route: 048
  7. NATISPRAY [Suspect]
     Indication: ANGINA PECTORIS
     Dosage: UNK, PRN
     Route: 002
  8. INNOVAIR [Suspect]
     Indication: ASTHMA
     Dosage: 2 DF, QD
     Route: 002
  9. TARDYFERON [Suspect]
     Indication: PRODUCT USED FOR UNKNOWN INDICATION
     Dosage: 80 MG, BID
     Route: 048
     Dates: end: 20130612
  10. ACETAMINOPHEN [Suspect]
     Indication: PAIN
     Dosage: 3 DF, QD
     Route: 048
     Dates: end: 20130612

REACTIONS (2)
  - Haemothorax [Fatal]
  - Ascites [Fatal]
